FAERS Safety Report 12091520 (Version 1)
Quarter: 2016Q1

REPORT INFORMATION
  Report Type: Spontaneous
  Country: IT (occurrence: IT)
  Receive Date: 20160218
  Receipt Date: 20160218
  Transmission Date: 20160526
  Serious: Yes (Hospitalization)
  Sender: FDA-Public Use
  Company Number: PHHY2016IT019093

PATIENT
  Age: 81 Year
  Sex: Male
  Weight: 81 kg

DRUGS (1)
  1. PACLITAXEL SANDOZ [Suspect]
     Active Substance: PACLITAXEL
     Indication: LUNG NEOPLASM MALIGNANT
     Dosage: 118 MG, ONCE/SINGLE
     Route: 042
     Dates: start: 20160209, end: 20160209

REACTIONS (3)
  - Disorientation [Recovered/Resolved]
  - Hyperhidrosis [Recovered/Resolved]
  - Hypoxia [Recovered/Resolved]

NARRATIVE: CASE EVENT DATE: 20160209
